FAERS Safety Report 8032500-X (Version None)
Quarter: 2011Q4

REPORT INFORMATION
  Report Type: 
  Country: None (occurrence: None)
  Receive Date: 20111223
  Receipt Date: 20111212
  Transmission Date: 20120403
  Serious: Yes (Other)
  Sender: FDA-Public Use
  Company Number: 2011SP054760

PATIENT
  Sex: Male

DRUGS (2)
  1. RIBAVIRIN [Suspect]
     Dosage: UNK;UNK, UNK;UNK
     Dates: start: 20111118
  2. RIBAVIRIN [Suspect]
     Dosage: UNK;UNK, UNK;UNK
     Dates: start: 20020101

REACTIONS (4)
  - ALCOHOL ABUSE [None]
  - DRUG ABUSE [None]
  - ANXIETY [None]
  - CONDITION AGGRAVATED [None]
